FAERS Safety Report 25417187 (Version 1)
Quarter: 2025Q2

REPORT INFORMATION
  Report Type: Spontaneous
  Country: US (occurrence: US)
  Receive Date: 20250610
  Receipt Date: 20250610
  Transmission Date: 20250717
  Serious: Yes (Hospitalization)
  Sender: ABBVIE
  Company Number: US-ABBVIE-6317362

PATIENT
  Age: 46 Year
  Sex: Female
  Weight: 72 kg

DRUGS (8)
  1. BYSTOLIC [Suspect]
     Active Substance: NEBIVOLOL HYDROCHLORIDE
     Indication: Hypertension
     Dosage: START DATE TEXT: 1.5 YEARS TO 2 YEARS AGO?FREQUENCY: 2.5 MILLIGRAM
     Route: 048
     Dates: end: 2024
  2. BYSTOLIC [Suspect]
     Active Substance: NEBIVOLOL HYDROCHLORIDE
     Indication: Hypertension
     Dosage: FREQUENCY: 2.5 MILLIGRAM?START DATE TEXT: 13 TO 14 YEARS AGO?STOP DATE TEXT: 1.5 YEARS TO 2 YEARS...
     Route: 048
  3. NEBIVOLOL [Suspect]
     Active Substance: NEBIVOLOL
     Indication: Hypertension
     Dosage: FORM STRENGTH: 5 MILLIGRAM?GENERIC BYSTOLIC
     Route: 048
     Dates: start: 2024, end: 2024
  4. NEBIVOLOL [Suspect]
     Active Substance: NEBIVOLOL
     Indication: Hypertension
     Dosage: FORM STRENGTH: 2.5 MILLIGRAM
     Route: 048
     Dates: start: 2024, end: 202412
  5. NEBIVOLOL [Suspect]
     Active Substance: NEBIVOLOL
     Indication: Hypertension
     Dosage: FORM STRENGTH: 2.5 MILLIGRAM?START DATE TEXT: 1.5 YEARS TO 2 YEARS AGO?STOP DATE TEXT: 1.5 YEARS ...
     Route: 048
  6. NEBIVOLOL [Suspect]
     Active Substance: NEBIVOLOL
     Indication: Hypertension
     Dosage: FORM STRENGTH: 5 MILLIGRAM
     Route: 048
     Dates: start: 202412
  7. LEVOTHYROXINE [Concomitant]
     Active Substance: LEVOTHYROXINE
     Indication: Hypothyroidism
  8. ESTRADIOL [Concomitant]
     Active Substance: ESTRADIOL
     Indication: Hormone therapy

REACTIONS (6)
  - Blood pressure increased [Not Recovered/Not Resolved]
  - Vitreous floaters [Not Recovered/Not Resolved]
  - Blood pressure increased [Recovered/Resolved]
  - Ophthalmic migraine [Recovered/Resolved]
  - Vision blurred [Recovered/Resolved]
  - Drug ineffective [Unknown]

NARRATIVE: CASE EVENT DATE: 20240101
